FAERS Safety Report 5701888-4 (Version None)
Quarter: 2008Q2

REPORT INFORMATION
  Report Type: 
  Country: None (occurrence: None)
  Receive Date: 20080411
  Receipt Date: 20080401
  Transmission Date: 20081010
  Serious: Yes (Other)
  Sender: FDA-Public Use
  Company Number: PHHY2008BR04674

PATIENT
  Age: 45 Year
  Sex: Male

DRUGS (3)
  1. TRILEPTAL [Suspect]
     Indication: BIPOLAR DISORDER
     Dosage: 2 TABLETS/DAY
     Route: 048
  2. CARBOLITIUM [Concomitant]
     Indication: BIPOLAR DISORDER
     Dosage: 2 TABLETS/DAY
     Route: 048
  3. OLANZAPINE [Concomitant]
     Indication: BIPOLAR DISORDER
     Dosage: 10 MG, 1 TABLET AT NIGHT

REACTIONS (3)
  - PARAESTHESIA [None]
  - SOMNOLENCE [None]
  - TREMOR [None]
